FAERS Safety Report 7348173-5 (Version None)
Quarter: 2011Q1

REPORT INFORMATION
  Report Type: 
  Country: None (occurrence: None)
  Receive Date: 20110311
  Receipt Date: 20110304
  Transmission Date: 20110831
  Serious: Yes (Hospitalization)
  Sender: FDA-Public Use
  Company Number: US-ENDO PHARMACEUTICALS INC.-OPER20110047

PATIENT
  Sex: Female

DRUGS (1)
  1. OPANA ER [Suspect]
     Dosage: UNK
     Route: 048

REACTIONS (1)
  - CARDIAC FAILURE CONGESTIVE [None]
